FAERS Safety Report 14375387 (Version 1)
Quarter: 2018Q1

REPORT INFORMATION
  Report Type: Spontaneous
  Country: US (occurrence: US)
  Receive Date: 20180110
  Receipt Date: 20180110
  Transmission Date: 20180509
  Serious: Yes (Hospitalization)
  Sender: FDA-Public Use
  Company Number: None

PATIENT
  Age: 88 Year
  Sex: Female
  Weight: 59.87 kg

DRUGS (9)
  1. MELATONIN [Concomitant]
     Active Substance: MELATONIN
  2. FAMOTIDINE. [Concomitant]
     Active Substance: FAMOTIDINE
  3. PRAVASTAIN [Concomitant]
  4. TIMOLOL. [Concomitant]
     Active Substance: TIMOLOL
  5. MIRALAX [Concomitant]
     Active Substance: POLYETHYLENE GLYCOL 3350
  6. WARFARIN GENERIC FOR COUMADIN [Suspect]
     Active Substance: WARFARIN SODIUM
     Indication: ATRIAL FIBRILLATION
     Route: 048
     Dates: start: 20170816, end: 20171214
  7. CHLORPROMAZINE. [Concomitant]
     Active Substance: CHLORPROMAZINE
  8. GLYBURIDE. [Concomitant]
     Active Substance: GLYBURIDE
  9. COLACE [Concomitant]
     Active Substance: DOCUSATE SODIUM

REACTIONS (4)
  - Confusional state [None]
  - Restlessness [None]
  - Abnormal behaviour [None]
  - Erythema [None]

NARRATIVE: CASE EVENT DATE: 20171207
